FAERS Safety Report 15229718 (Version 1)
Quarter: 2018Q3

REPORT INFORMATION
  Report Type: Spontaneous
  Country: US (occurrence: US)
  Receive Date: 20180802
  Receipt Date: 20180802
  Transmission Date: 20181010
  Serious: Yes (Other)
  Sender: FDA-Public Use
  Company Number: US-ACCORD-061785

PATIENT
  Age: 54 Year
  Sex: Female
  Weight: 88.9 kg

DRUGS (13)
  1. HYDROCHLOROTHIAZIDE/TRIAMTERENE [Concomitant]
     Dosage: THERAPY DATES: 2006 TO 2013 AND 2013 TO PRESENT
     Dates: start: 2006
  2. DIPHENHYDRAMINE. [Concomitant]
     Active Substance: DIPHENHYDRAMINE
  3. FLUPREDNIDENE [Concomitant]
  4. PALONOSETRON. [Concomitant]
     Active Substance: PALONOSETRON HYDROCHLORIDE
  5. FAMOTIDINE. [Concomitant]
     Active Substance: FAMOTIDINE
  6. ERGOCALCIFEROL. [Concomitant]
     Active Substance: ERGOCALCIFEROL
  7. GLUTAMIC ACID [Concomitant]
     Active Substance: GLUTAMIC ACID
  8. TAXOTERE [Suspect]
     Active Substance: DOCETAXEL
     Indication: INVASIVE DUCTAL BREAST CARCINOMA
     Dosage: FREQUENCY EVERY THREE WEEKS.??NUMBER OF CYCLE :6
     Dates: start: 20130104, end: 20130424
  9. CYTOXAN [Suspect]
     Active Substance: CYCLOPHOSPHAMIDE
     Indication: BREAST CANCER
     Dates: start: 20130104, end: 20130424
  10. CYANOCOBALAMIN. [Concomitant]
     Active Substance: CYANOCOBALAMIN
  11. APREPITANT. [Concomitant]
     Active Substance: APREPITANT
  12. COLCHICINE. [Concomitant]
     Active Substance: COLCHICINE
     Dates: start: 2013
  13. GRANULOCYTE MACROPHAGE COLONY [Concomitant]

REACTIONS (7)
  - Pain [Unknown]
  - Alopecia [Not Recovered/Not Resolved]
  - Headache [Unknown]
  - Fatigue [Unknown]
  - Hypoaesthesia [Unknown]
  - Nausea [Unknown]
  - Anaemia [Unknown]

NARRATIVE: CASE EVENT DATE: 20130104
